FAERS Safety Report 8244876-9 (Version None)
Quarter: 2012Q1

REPORT INFORMATION
  Report Type: 
  Country: None (occurrence: None)
  Receive Date: 20120329
  Receipt Date: 20110726
  Transmission Date: 20120608
  Serious: No
  Sender: FDA-Public Use
  Company Number: US-MYLANLABS-2011S1015639

PATIENT
  Age: 44 Year
  Sex: Male
  Weight: 70.31 kg

DRUGS (6)
  1. GABAPENTIN [Concomitant]
  2. CLONAZEPAM [Concomitant]
  3. AMITRIPTYLINE HCL [Concomitant]
  4. FENTANYL-100 [Suspect]
     Dosage: Q 44.5HRS
     Route: 062
     Dates: start: 20080101
  5. WELLBUTRIN [Concomitant]
  6. FENTANYL-100 [Suspect]
     Indication: NEURALGIA
     Dosage: Q44.5H
     Route: 062
     Dates: start: 20080101

REACTIONS (3)
  - PAIN [None]
  - DRUG EFFECT DECREASED [None]
  - DRUG WITHDRAWAL SYNDROME [None]
